FAERS Safety Report 15838094 (Version 1)
Quarter: 2018Q4

REPORT INFORMATION
  Report Type: Spontaneous
  Country: US (occurrence: US)
  Receive Date: 20181221
  Receipt Date: 20181221
  Transmission Date: 20190205
  Serious: No
  Sender: FDA-Public Use
  Company Number: None

PATIENT
  Age: 69 Year
  Sex: Male

DRUGS (1)
  1. CAPECITABINE TAB 500MG [Suspect]
     Active Substance: CAPECITABINE
     Dates: start: 20181018

REACTIONS (3)
  - Neuropathy peripheral [None]
  - Skin fissures [None]
  - Skin discolouration [None]

NARRATIVE: CASE EVENT DATE: 20181130
